FAERS Safety Report 8427416-0 (Version None)
Quarter: 2012Q2

REPORT INFORMATION
  Report Type: 
  Country: None (occurrence: None)
  Receive Date: 20120323
  Receipt Date: 20110311
  Transmission Date: 20120825
  Serious: Yes (Other)
  Sender: FDA-Public Use
  Company Number: 163-21880-11021674

PATIENT
  Sex: Male

DRUGS (2)
  1. LENALIDOMIDE [Suspect]
     Indication: MULTIPLE MYELOMA
     Dosage: 15 MG, DAILY, PO ; 10 MG, DAILY, PO
     Route: 048
     Dates: start: 20101201, end: 20110101
  2. LENALIDOMIDE [Suspect]
     Indication: MULTIPLE MYELOMA
     Dosage: 15 MG, DAILY, PO ; 10 MG, DAILY, PO
     Route: 048
     Dates: start: 20101101

REACTIONS (1)
  - MULTIPLE MYELOMA [None]
